FAERS Safety Report 4831537-9 (Version None)
Quarter: 2005Q4

REPORT INFORMATION
  Report Type: 
  Country: None (occurrence: None)
  Receive Date: 20051118
  Receipt Date: 20051107
  Transmission Date: 20060501
  Serious: Yes (Other)
  Sender: FDA-Public Use
  Company Number: US-JNJFOC-20051000453

PATIENT
  Sex: Female
  Weight: 86.18 kg

DRUGS (5)
  1. REMICADE [Suspect]
     Indication: CROHN'S DISEASE
     Dosage: 5 VIALS, CURRENT GREATER THAN 6 MONTHS
     Route: 042
  2. METHOTREXATE [Suspect]
     Indication: DRUG USE FOR UNKNOWN INDICATION
  3. ANTIBIOTICS [Concomitant]
     Dosage: CURRENT, 3-6 MONTHS
  4. 6-MP [Concomitant]
     Dosage: CURRENT, 3- 6 MONTHS
  5. PREDNISONE [Concomitant]
     Dosage: CURRENT, 3-6 MONTHS

REACTIONS (2)
  - NEUROTOXICITY [None]
  - URTICARIA [None]
